FAERS Safety Report 14310074 (Version 4)
Quarter: 2018Q1

REPORT INFORMATION
  Report Type: Spontaneous
  Country: JP (occurrence: JP)
  Receive Date: 20171220
  Receipt Date: 20180105
  Transmission Date: 20180509
  Serious: Yes (Other)
  Sender: FDA-Public Use
  Company Number: PHJP2017JP036400

PATIENT
  Age: 84 Year
  Sex: Female

DRUGS (1)
  1. CICLOSPORIN [Suspect]
     Active Substance: CYCLOSPORINE
     Indication: PEMPHIGOID
     Dosage: 4.5 MG/KG, QH
     Route: 065

REACTIONS (3)
  - Hypogammaglobulinaemia [Unknown]
  - Atypical mycobacterial infection [Unknown]
  - Product use in unapproved indication [Unknown]
